FAERS Safety Report 4477767-X (Version None)
Quarter: 2004Q4

REPORT INFORMATION
  Report Type: 
  Country: None (occurrence: None)
  Receive Date: 20041014
  Receipt Date: 20041004
  Transmission Date: 20050328
  Serious: Yes (Hospitalization)
  Sender: FDA-Public Use
  Company Number: S04-USA-04361-01

PATIENT
  Age: 85 Year
  Sex: Female

DRUGS (5)
  1. NAMENDA [Suspect]
     Indication: DEMENTIA
     Dosage: 5 MG QAM PO
     Route: 048
     Dates: end: 20040709
  2. NAMENDA [Suspect]
     Indication: DEMENTIA
     Dosage: 10 MG QHS PO
     Route: 048
     Dates: end: 20040709
  3. NAMENDA [Suspect]
     Indication: DEMENTIA
     Dosage: 5 MG QD PO
     Route: 048
     Dates: start: 20040528
  4. NAMENDA [Suspect]
     Indication: DEMENTIA
     Dosage: 5 MG BID PO
     Route: 048
  5. ARICEPT [Concomitant]

REACTIONS (3)
  - COMA [None]
  - ELECTROENCEPHALOGRAM ABNORMAL [None]
  - PETIT MAL EPILEPSY [None]
